FAERS Safety Report 23944929 (Version 1)
Quarter: 2024Q2

REPORT INFORMATION
  Report Type: Spontaneous
  Country: FR (occurrence: FR)
  Receive Date: 20240606
  Receipt Date: 20240606
  Transmission Date: 20240716
  Serious: Yes (Hospitalization)
  Sender: FDA-Public Use
  Company Number: None

PATIENT
  Age: 43 Year
  Sex: Male
  Weight: 63.2 kg

DRUGS (1)
  1. KEPPRA [Suspect]
     Active Substance: LEVETIRACETAM
     Indication: Status epilepticus
     Dosage: INITIALLY 1,000 MG IN THE MORNING AND EVENING (THEN DECREASING TO 250 MG IN THE MORNING AND EVENING)
     Route: 048
     Dates: start: 20240318

REACTIONS (1)
  - Hypotension [Not Recovered/Not Resolved]
